FAERS Safety Report 14408271 (Version 2)
Quarter: 2018Q1

REPORT INFORMATION
  Report Type: Spontaneous
  Country: BE (occurrence: BE)
  Receive Date: 20180118
  Receipt Date: 20180220
  Transmission Date: 20180509
  Serious: Yes (Hospitalization)
  Sender: FDA-Public Use
  Company Number: BE-SA-2018SA007894

PATIENT
  Age: 25 Year
  Sex: Female

DRUGS (3)
  1. AUBAGIO [Suspect]
     Active Substance: TERIFLUNOMIDE
     Indication: MULTIPLE SCLEROSIS
     Route: 048
     Dates: start: 201507, end: 201712
  2. VITAMIN D [Concomitant]
     Active Substance: CHOLECALCIFEROL
  3. REBIF [Concomitant]
     Active Substance: INTERFERON BETA-1A

REACTIONS (6)
  - Vomiting [Recovering/Resolving]
  - Nausea [Recovering/Resolving]
  - Acute kidney injury [Recovered/Resolved]
  - Infection [Recovering/Resolving]
  - Thrombocytopenia [Recovered/Resolved]
  - Abdominal pain lower [Recovering/Resolving]

NARRATIVE: CASE EVENT DATE: 201712
